FAERS Safety Report 7806816-3 (Version None)
Quarter: 2011Q4

REPORT INFORMATION
  Report Type: 
  Country: None (occurrence: None)
  Receive Date: 20111011
  Receipt Date: 20111007
  Transmission Date: 20120403
  Serious: Yes (Other)
  Sender: FDA-Public Use
  Company Number: MX-PFIZER INC-2011241476

PATIENT
  Age: 67 Year
  Sex: Male

DRUGS (2)
  1. LIPITOR [Suspect]
     Dosage: 80 MG, UNK
     Route: 048
  2. INSPRA [Suspect]
     Dosage: 25 MG, UNK
     Route: 048

REACTIONS (1)
  - RHABDOMYOLYSIS [None]
